FAERS Safety Report 10190884 (Version 1)
Quarter: 2014Q2

REPORT INFORMATION
  Report Type: Spontaneous
  Country: US (occurrence: None)
  Receive Date: 20140521
  Receipt Date: 20140521
  Transmission Date: 20141212
  Serious: Yes (Other)
  Sender: FDA-Public Use
  Company Number: None

PATIENT
  Age: 31 Year
  Sex: Male
  Weight: 113.4 kg

DRUGS (3)
  1. MOBIC [Suspect]
     Indication: UPPER LIMB FRACTURE
     Dosage: 1 DAILY,  ONCE DAILY
     Dates: start: 20140519, end: 20140520
  2. MOBIC [Suspect]
     Indication: JOINT DISLOCATION
     Dosage: 1 DAILY,  ONCE DAILY
     Dates: start: 20140519, end: 20140520
  3. MOBIC [Suspect]
     Indication: ROTATOR CUFF SYNDROME
     Dosage: 1 DAILY,  ONCE DAILY
     Dates: start: 20140519, end: 20140520

REACTIONS (7)
  - Panic reaction [None]
  - Palpitations [None]
  - Dyspnoea [None]
  - Rash [None]
  - Rash [None]
  - Rash [None]
  - Insomnia [None]
